FAERS Safety Report 8737249 (Version 2)
Quarter: 2014Q2

REPORT INFORMATION
  Report Type: Spontaneous
  Country: US (occurrence: US)
  Receive Date: 20120822
  Receipt Date: 20140604
  Transmission Date: 20141212
  Serious: No
  Sender: FDA-Public Use
  Company Number: US-ASTRAZENECA-2010SE61439

PATIENT
  Age: 71 Year
  Sex: Female

DRUGS (5)
  1. SYMBICORT [Suspect]
     Indication: ASTHMA
     Dosage: 80/4.5 MCG 1 PUFF BID
     Route: 055
  2. SYMBICORT [Suspect]
     Indication: CHRONIC OBSTRUCTIVE PULMONARY DISEASE
     Dosage: 80/4.5 MCG 1 PUFF BID
     Route: 055
  3. NEXIUM [Suspect]
     Indication: GASTROOESOPHAGEAL REFLUX DISEASE
     Route: 048
  4. CRESTOR [Suspect]
     Route: 048
  5. EFFEXOR [Concomitant]

REACTIONS (6)
  - Dyspnoea [Unknown]
  - Dermatitis bullous [Unknown]
  - Rash pruritic [Unknown]
  - Depression [Unknown]
  - Stress [Unknown]
  - Drug dose omission [Not Recovered/Not Resolved]
